FAERS Safety Report 19874892 (Version 1)
Quarter: 2021Q3

REPORT INFORMATION
  Report Type: Spontaneous
  Country: JP (occurrence: JP)
  Receive Date: 20210922
  Receipt Date: 20210922
  Transmission Date: 20211014
  Serious: Yes (Other)
  Sender: FDA-Public Use
  Company Number: JP-MYOVANT SCIENCES GMBH-2021MYSCI0900290

PATIENT
  Age: 51 Year
  Sex: Female

DRUGS (2)
  1. RELUMINA [Suspect]
     Active Substance: RELUGOLIX
     Indication: UTERINE LEIOMYOMA
     Dosage: 40 MILLIGRAM, QD
     Route: 048
     Dates: start: 20200109, end: 20200205
  2. RELUMINA [Suspect]
     Active Substance: RELUGOLIX
     Indication: HEAVY MENSTRUAL BLEEDING

REACTIONS (2)
  - Genital haemorrhage [Unknown]
  - Asthenopia [Recovered/Resolved]

NARRATIVE: CASE EVENT DATE: 20200109
